FAERS Safety Report 5818422-0 (Version None)
Quarter: 2008Q3

REPORT INFORMATION
  Report Type: 
  Country: None (occurrence: None)
  Receive Date: 20080717
  Receipt Date: 20080707
  Transmission Date: 20090109
  Serious: Yes (Hospitalization)
  Sender: FDA-Public Use
  Company Number: 2008BI017000

PATIENT
  Age: 64 Year
  Sex: Female
  Weight: 137.4399 kg

DRUGS (2)
  1. AVONEX [Suspect]
     Indication: MULTIPLE SCLEROSIS
     Dosage: 30 UG;QW;IM, 30 UG;QW;IM
     Route: 030
     Dates: start: 19970101, end: 20030101
  2. AVONEX [Suspect]
     Indication: MULTIPLE SCLEROSIS
     Dosage: 30 UG;QW;IM, 30 UG;QW;IM
     Route: 030
     Dates: start: 20030101

REACTIONS (8)
  - ANKLE FRACTURE [None]
  - BLISTER [None]
  - CEREBROVASCULAR ACCIDENT [None]
  - DRY SKIN [None]
  - FALL [None]
  - INFLUENZA LIKE ILLNESS [None]
  - JOINT SWELLING [None]
  - POOR PERIPHERAL CIRCULATION [None]
